FAERS Safety Report 8784729 (Version 1)
Quarter: 2012Q4

REPORT INFORMATION
  Report Type: 
  Country: AT (occurrence: AT)
  Receive Date: 20120914
  Receipt Date: 20120914
  Transmission Date: 20130627
  Serious: Yes (Hospitalization)
  Sender: FDA-Public Use
  Company Number: AT-JNJFOC-20120901762

PATIENT
  Age: 39 Year
  Sex: Female

DRUGS (2)
  1. SIMPONI [Suspect]
     Indication: SPONDYLOARTHROPATHY
     Route: 058
     Dates: start: 201107
  2. METHOTREXATE [Concomitant]
     Indication: SPONDYLOARTHROPATHY
     Route: 065
     Dates: start: 201107

REACTIONS (1)
  - Genital herpes [Recovered/Resolved]
